FAERS Safety Report 4345354-X (Version None)
Quarter: 2004Q2

REPORT INFORMATION
  Report Type: 
  Country: None (occurrence: None)
  Receive Date: 20040408
  Receipt Date: 20040408
  Transmission Date: 20050107
  Serious: Yes (Hospitalization)
  Sender: FDA-Public Use
  Company Number: US-SHR-03-018778

PATIENT
  Age: 36 Year
  Sex: Female
  Weight: 73.9 kg

DRUGS (10)
  1. BETASERON [Suspect]
     Indication: MULTIPLE SCLEROSIS
     Dosage: 0.8 ML (200 MCG), EVERY 2D, SUBCUTANEOUS
     Route: 058
     Dates: start: 20030224, end: 20030925
  2. DITROPAN XL [Concomitant]
  3. LOMOTIL [Concomitant]
  4. PROTONIX ^PHARMACIA^ (PANTOPRAZOLE) [Concomitant]
  5. TYLENOL PM (DIPHENHYDRAMINE) [Concomitant]
  6. VITAMIN B-12 [Concomitant]
  7. ALEVE [Concomitant]
  8. VICODIN [Concomitant]
  9. ZOFRAN [Concomitant]
  10. NERVE BLOCK TRIGGER POINT INJECTIONS [Concomitant]

REACTIONS (9)
  - CONDITION AGGRAVATED [None]
  - DRUG TOLERANCE DECREASED [None]
  - HEADACHE [None]
  - MENINGITIS [None]
  - MIGRAINE [None]
  - MULTIPLE SCLEROSIS [None]
  - NAUSEA [None]
  - SUBARACHNOID HAEMORRHAGE [None]
  - VOMITING [None]
